FAERS Safety Report 20638224 (Version 1)
Quarter: 2022Q1

REPORT INFORMATION
  Report Type: Spontaneous
  Country: US (occurrence: US)
  Receive Date: 20220325
  Receipt Date: 20220325
  Transmission Date: 20220423
  Serious: Yes (Other)
  Sender: FDA-Public Use
  Company Number: US-PFIZER INC-202200417976

PATIENT
  Age: 74 Year
  Sex: Female

DRUGS (1)
  1. XELJANZ XR [Suspect]
     Active Substance: TOFACITINIB CITRATE
     Indication: Rheumatoid arthritis
     Dosage: 11 MG, DAILY

REACTIONS (9)
  - Polyarthritis [Unknown]
  - Condition aggravated [Unknown]
  - Arthralgia [Unknown]
  - Pain in jaw [Unknown]
  - Trismus [Unknown]
  - Dyskinesia [Unknown]
  - Peripheral swelling [Unknown]
  - Arthropathy [Unknown]
  - Joint swelling [Unknown]
